FAERS Safety Report 5884008-5 (Version None)
Quarter: 2008Q3

REPORT INFORMATION
  Report Type: 
  Country: None (occurrence: None)
  Receive Date: 20080915
  Receipt Date: 20080904
  Transmission Date: 20090109
  Serious: Yes (Death, Hospitalization, Other)
  Sender: FDA-Public Use
  Company Number: US-AVENTIS-200815924US

PATIENT

DRUGS (2)
  1. GLYBURIDE [Suspect]
     Dosage: DOSE: 10-15 MG
  2. INSULIN [Concomitant]
     Dosage: DOSE: UNK
     Route: 051

REACTIONS (8)
  - CARDIAC FAILURE [None]
  - CARDIOVASCULAR DISORDER [None]
  - HYPERGLYCAEMIA [None]
  - HYPOGLYCAEMIA [None]
  - MYOCARDIAL INFARCTION [None]
  - PNEUMONIA [None]
  - SUDDEN DEATH [None]
  - VENTRICULAR TACHYCARDIA [None]
